FAERS Safety Report 17649966 (Version 2)
Quarter: 2020Q2

REPORT INFORMATION
  Report Type: Spontaneous
  Country: IT (occurrence: IT)
  Receive Date: 20200408
  Receipt Date: 20200414
  Transmission Date: 20200713
  Serious: Yes (Other)
  Sender: FDA-Public Use
  Company Number: NVSC2020IT095187

PATIENT
  Age: 77 Year
  Sex: Female

DRUGS (3)
  1. SIMBRINZA [Suspect]
     Active Substance: BRIMONIDINE TARTRATE\BRINZOLAMIDE
     Dosage: 1 DRP (10 MG), BID (MORNING AND EVENING)
     Route: 047
  2. SIMBRINZA [Suspect]
     Active Substance: BRIMONIDINE TARTRATE\BRINZOLAMIDE
     Indication: INTRAOCULAR PRESSURE INCREASED
     Dosage: 1 DRP (10 MG), BID (MORNING AND EVENING)
     Route: 047
  3. APROVEL [Concomitant]
     Active Substance: IRBESARTAN
     Indication: HYPERTENSION
     Dosage: 1 DF (150 - UNIT NOT REPORTED), BID
     Route: 065

REACTIONS (4)
  - Blood pressure increased [Unknown]
  - Dermatitis [Unknown]
  - Blood pressure decreased [Recovered/Resolved]
  - Blood pressure decreased [Unknown]
